FAERS Safety Report 4812729-1 (Version None)
Quarter: 2005Q4

REPORT INFORMATION
  Report Type: 
  Country: None (occurrence: None)
  Receive Date: 20051028
  Receipt Date: 20041111
  Transmission Date: 20060501
  Serious: Yes (Hospitalization)
  Sender: FDA-Public Use
  Company Number: US-GLAXOSMITHKLINE-A0533590A

PATIENT
  Age: 9 Year
  Sex: Male

DRUGS (2)
  1. ADVAIR DISKUS 100/50 [Suspect]
     Indication: ASTHMA
     Dosage: 200MCG PER DAY
     Route: 055
  2. ALBUTEROL [Concomitant]

REACTIONS (2)
  - CATARACT [None]
  - PHARMACEUTICAL PRODUCT COMPLAINT [None]
